FAERS Safety Report 14183416 (Version 1)
Quarter: 2017Q4

REPORT INFORMATION
  Report Type: Spontaneous
  Country: JP (occurrence: JP)
  Receive Date: 20171113
  Receipt Date: 20171113
  Transmission Date: 20180321
  Serious: Yes (Life-Threatening)
  Sender: FDA-Public Use
  Company Number: JP-ASTRAZENECA-2017SF15655

PATIENT
  Age: 61 Year
  Sex: Female
  Weight: 69 kg

DRUGS (8)
  1. BROTIZOLAM [Concomitant]
     Active Substance: BROTIZOLAM
     Dates: start: 20160830, end: 20160914
  2. PYRETHIA [Concomitant]
     Active Substance: PROMETHAZINE HYDROCHLORIDE
     Route: 048
  3. AMOXAN [Suspect]
     Active Substance: AMOXAPINE
     Indication: BIPOLAR II DISORDER
     Route: 048
     Dates: start: 20160712, end: 20160913
  4. LIMAS [Concomitant]
     Active Substance: LITHIUM CARBONATE
     Dates: start: 20160913, end: 20160914
  5. TOLEDOMIN [Suspect]
     Active Substance: MILNACIPRAN HYDROCHLORIDE
     Indication: BIPOLAR II DISORDER
     Route: 048
     Dates: start: 20160808, end: 20160913
  6. FLUNITRAZEPAM [Concomitant]
     Active Substance: FLUNITRAZEPAM
     Dates: start: 20160830, end: 20160914
  7. OLANZAPINE. [Concomitant]
     Active Substance: OLANZAPINE
  8. SEROQUEL [Suspect]
     Active Substance: QUETIAPINE FUMARATE
     Indication: BIPOLAR II DISORDER
     Route: 048
     Dates: start: 20160723, end: 20160913

REACTIONS (4)
  - Off label use [Unknown]
  - Altered state of consciousness [Not Recovered/Not Resolved]
  - Extrapyramidal disorder [Unknown]
  - Neuroleptic malignant syndrome [Not Recovered/Not Resolved]

NARRATIVE: CASE EVENT DATE: 20160723
